FAERS Safety Report 26005906 (Version 1)
Quarter: 2025Q4

REPORT INFORMATION
  Report Type: Spontaneous
  Country: US (occurrence: None)
  Receive Date: 20251105
  Receipt Date: 20251105
  Transmission Date: 20260118
  Serious: Yes (Other)
  Sender: FDA-CTU
  Company Number: None

PATIENT
  Age: 56 Year
  Sex: Female

DRUGS (2)
  1. AMJEVITA [Suspect]
     Active Substance: ADALIMUMAB-ATTO
  2. DUPIXENT [Suspect]
     Active Substance: DUPILUMAB

REACTIONS (8)
  - Muscle spasms [None]
  - Diarrhoea [None]
  - Nausea [None]
  - Vomiting [None]
  - Constipation [None]
  - Fatigue [None]
  - Weight decreased [None]
  - Injection site reaction [None]
